FAERS Safety Report 8519083-2 (Version None)
Quarter: 2012Q3

REPORT INFORMATION
  Report Type: 
  Country: None (occurrence: None)
  Receive Date: 20120718
  Receipt Date: 20120625
  Transmission Date: 20120928
  Serious: No
  Sender: FDA-Public Use
  Company Number: US-ASTRAZENECA-2012SE36268

PATIENT
  Age: 81 Year
  Sex: Female
  Weight: 66.7 kg

DRUGS (1)
  1. VIMOVO [Suspect]
     Route: 048

REACTIONS (4)
  - DIZZINESS [None]
  - PAIN [None]
  - TINNITUS [None]
  - INSOMNIA [None]
